FAERS Safety Report 12640971 (Version 1)
Quarter: 2016Q3

REPORT INFORMATION
  Report Type: Spontaneous
  Country: DE (occurrence: DE)
  Receive Date: 20160810
  Receipt Date: 20160810
  Transmission Date: 20161109
  Serious: Yes (Death, Other)
  Sender: FDA-Public Use
  Company Number: DE-SA-2016SA145743

PATIENT
  Age: 53 Year
  Sex: Female

DRUGS (6)
  1. LEVOTHYROXINE. [Concomitant]
     Active Substance: LEVOTHYROXINE
  2. CALCITRIOL. [Concomitant]
     Active Substance: CALCITRIOL
     Indication: HYPOPARATHYROIDISM
  3. VANDETANIB. [Suspect]
     Active Substance: VANDETANIB
     Indication: METASTASIS
     Route: 065
  4. VANDETANIB. [Suspect]
     Active Substance: VANDETANIB
     Indication: MEDULLARY THYROID CANCER
     Route: 065
  5. CALCIUM [Concomitant]
     Active Substance: CALCIUM
     Indication: HYPOPARATHYROIDISM
  6. OCTREOTIDE. [Concomitant]
     Active Substance: OCTREOTIDE
     Indication: MEDULLARY THYROID CANCER
     Dosage: EVERY 4 WEEKS

REACTIONS (14)
  - Metastases to gastrointestinal tract [Unknown]
  - Fatigue [Fatal]
  - Blood calcitonin increased [Fatal]
  - Condition aggravated [Fatal]
  - Hepatic lesion [Unknown]
  - Multiple organ dysfunction syndrome [Fatal]
  - Medullary thyroid cancer [Fatal]
  - C-reactive protein increased [Fatal]
  - Abdominal pain upper [Unknown]
  - Metastases to lymph nodes [Unknown]
  - Gastric mucosal lesion [Unknown]
  - Disease progression [Fatal]
  - Decreased appetite [Unknown]
  - Metastases to liver [Unknown]
